FAERS Safety Report 22061455 (Version 1)
Quarter: 2023Q1

REPORT INFORMATION
  Report Type: Spontaneous
  Country: CA (occurrence: CA)
  Receive Date: 20230304
  Receipt Date: 20230304
  Transmission Date: 20230418
  Serious: Yes (Other)
  Sender: FDA-Public Use
  Company Number: CA-ABBVIE-4149962

PATIENT
  Age: 40 Year
  Sex: Female

DRUGS (1)
  1. HUMIRA [Suspect]
     Active Substance: ADALIMUMAB
     Indication: Product used for unknown indication
     Route: 058

REACTIONS (6)
  - Furuncle [Unknown]
  - Anal fistula [Unknown]
  - Abdominal pain [Unknown]
  - Proctalgia [Unknown]
  - Rectal haemorrhage [Unknown]
  - Diarrhoea [Unknown]
